FAERS Safety Report 6581991-X (Version None)
Quarter: 2010Q1

REPORT INFORMATION
  Report Type: 
  Country: None (occurrence: None)
  Receive Date: 20100215
  Receipt Date: 20100127
  Transmission Date: 20100710
  Serious: Yes (Other)
  Sender: FDA-Public Use
  Company Number: PHEH2008US08948

PATIENT
  Sex: Female

DRUGS (17)
  1. ZOMETA [Suspect]
     Indication: MULTIPLE MYELOMA
     Dosage: UNK
  2. ZOMETA [Suspect]
     Indication: BONE DENSITY ABNORMAL
  3. AREDIA [Suspect]
     Indication: MULTIPLE MYELOMA
  4. CYCLOBENZAPRINE [Concomitant]
  5. DOCUSATE SODIUM W/SENNA [Concomitant]
  6. LORAZEPAM [Concomitant]
  7. VIOXX [Concomitant]
  8. POTASSIUM [Concomitant]
  9. WELLBUTRIN SR [Concomitant]
  10. FLURBIPROFEN [Concomitant]
     Dosage: 100 MG TABLETS
  11. TRAMADOL [Concomitant]
     Dosage: 50 MG TABLETS
  12. CHLORHEXIDINE DENTAL ^ACO^ [Concomitant]
     Dosage: UNK
  13. CLINDAMYCIN [Concomitant]
     Dosage: 150 MG TABLETS
  14. CEPHALEXIN [Concomitant]
     Dosage: 500 MG CAPSULES
  15. METHOCARBAMOL [Concomitant]
     Dosage: 750 MG TABLETS
  16. NORTRIPTYLINE HCL [Concomitant]
     Dosage: 250 MG TABLETS
  17. CHEMOTHERAPEUTICS NOS [Concomitant]
     Dosage: UNK

REACTIONS (22)
  - ABSCESS DRAINAGE [None]
  - ALPHA HAEMOLYTIC STREPTOCOCCAL INFECTION [None]
  - ANAEMIA [None]
  - ANHEDONIA [None]
  - ANXIETY [None]
  - APHERESIS [None]
  - BONE DISORDER [None]
  - DIALYSIS [None]
  - DISABILITY [None]
  - FISTULA DISCHARGE [None]
  - GINGIVAL OPERATION [None]
  - INJURY [None]
  - JAW OPERATION [None]
  - MYOFASCIAL PAIN SYNDROME [None]
  - NECK MASS [None]
  - OSTEOMYELITIS [None]
  - OSTEONECROSIS [None]
  - PAIN [None]
  - RENAL FAILURE CHRONIC [None]
  - SPINAL OSTEOARTHRITIS [None]
  - SUBMANDIBULAR MASS [None]
  - TOOTH EXTRACTION [None]
